FAERS Safety Report 5626852-5 (Version None)
Quarter: 2008Q1

REPORT INFORMATION
  Report Type: 
  Country: None (occurrence: None)
  Receive Date: 20080212
  Receipt Date: 20080201
  Transmission Date: 20080703
  Serious: Yes (Hospitalization)
  Sender: FDA-Public Use
  Company Number: GXKR2008DE01328

PATIENT
  Sex: Male

DRUGS (1)
  1. ALLOPURINOL [Suspect]
     Dosage: 150 MG, QD, ORAL
     Route: 048

REACTIONS (4)
  - BURSITIS [None]
  - CHOLECYSTITIS [None]
  - COUGH [None]
  - DYSPHONIA [None]
